FAERS Safety Report 9289171 (Version 2)
Quarter: 2013Q2

REPORT INFORMATION
  Report Type: Spontaneous
  Country: US (occurrence: US)
  Receive Date: 20130514
  Receipt Date: 20130528
  Transmission Date: 20140414
  Serious: Yes (Hospitalization, Other)
  Sender: FDA-Public Use
  Company Number: US-BAXTER-2013BAX016862

PATIENT
  Age: 37 Year
  Sex: Female
  Weight: 55.91 kg

DRUGS (9)
  1. GAMMAGARD LIQUID [Suspect]
     Indication: NEUROPATHY PERIPHERAL
     Route: 042
     Dates: start: 20130115, end: 20130115
  2. GAMMAGARD LIQUID [Suspect]
     Indication: OFF LABEL USE
     Route: 042
     Dates: start: 20130116, end: 20130116
  3. GAMMAGARD LIQUID [Suspect]
     Dosage: 0.3 GM/KG
     Route: 042
     Dates: start: 20130118, end: 20130118
  4. GAMMAGARD LIQUID [Suspect]
     Dosage: 0.3 GM/KG
     Route: 042
     Dates: start: 20130119, end: 20130119
  5. ZOLOFT [Concomitant]
     Indication: PRODUCT USED FOR UNKNOWN INDICATION
     Route: 048
  6. SINGULAR [Concomitant]
     Indication: PRODUCT USED FOR UNKNOWN INDICATION
     Route: 048
  7. ADVAIR [Concomitant]
     Indication: PRODUCT USED FOR UNKNOWN INDICATION
     Route: 055
  8. ABILIFY [Concomitant]
     Indication: PRODUCT USED FOR UNKNOWN INDICATION
     Route: 048
  9. ADDERALL [Concomitant]
     Indication: PRODUCT USED FOR UNKNOWN INDICATION
     Route: 048

REACTIONS (11)
  - Maternal exposure before pregnancy [Unknown]
  - Headache [Recovered/Resolved]
  - Nausea [Recovered/Resolved]
  - Neck pain [Recovered/Resolved]
  - Photophobia [Recovered/Resolved]
  - Vomiting [Recovered/Resolved]
  - Head discomfort [Recovered/Resolved]
  - Abasia [Recovered/Resolved]
  - Pregnancy [Recovered/Resolved]
  - Ectopic pregnancy [Recovered/Resolved]
  - Abortion [Unknown]
